FAERS Safety Report 11245002 (Version 1)
Quarter: 2015Q3

REPORT INFORMATION
  Report Type: Spontaneous
  Country: IT (occurrence: IT)
  Receive Date: 20150707
  Receipt Date: 20150707
  Transmission Date: 20151125
  Serious: Yes (Other)
  Sender: FDA-Public Use
  Company Number: IT-ACTAVIS-2015-13836

PATIENT
  Age: 68 Year
  Sex: Male
  Weight: 75 kg

DRUGS (1)
  1. BICALUTAMIDE (UNKNOWN) [Suspect]
     Active Substance: BICALUTAMIDE
     Indication: PROSTATE CANCER
     Dosage: 50 MG, DAILY
     Route: 048
     Dates: start: 20150101, end: 20150518

REACTIONS (1)
  - No therapeutic response [Recovered/Resolved]

NARRATIVE: CASE EVENT DATE: 20150518
